FAERS Safety Report 7202211-9 (Version None)
Quarter: 2010Q4

REPORT INFORMATION
  Report Type: 
  Country: None (occurrence: None)
  Receive Date: 20101229
  Receipt Date: 20101219
  Transmission Date: 20110411
  Serious: Yes (Hospitalization, Other)
  Sender: FDA-Public Use
  Company Number: US-PFIZER INC-2010174959

PATIENT
  Sex: Male
  Weight: 68 kg

DRUGS (4)
  1. DILANTIN [Suspect]
     Indication: CONVULSION
     Dosage: 100 MG, 4X/DAY
     Route: 048
     Dates: end: 20101215
  2. NITROGLYCERIN [Concomitant]
     Dosage: UNK
  3. PLETAL [Concomitant]
     Indication: VEIN DISORDER
     Dosage: 100 MG, 2X/DAY
  4. DEPAKOTE [Concomitant]
     Dosage: UNK

REACTIONS (5)
  - BLOOD CHOLESTEROL INCREASED [None]
  - DRUG LEVEL INCREASED [None]
  - MUSCULOSKELETAL DISCOMFORT [None]
  - NAUSEA [None]
  - OVERDOSE [None]
